FAERS Safety Report 10608578 (Version 1)
Quarter: 2014Q4

REPORT INFORMATION
  Report Type: Spontaneous
  Country: IT (occurrence: IT)
  Receive Date: 20141125
  Receipt Date: 20141125
  Transmission Date: 20150529
  Serious: Yes (Hospitalization)
  Sender: FDA-Public Use
  Company Number: IT-TEVA-523886ISR

PATIENT
  Age: 86 Year
  Sex: Male

DRUGS (4)
  1. TICLOPIDINE [Concomitant]
     Active Substance: TICLOPIDINE
     Indication: PRODUCT USED FOR UNKNOWN INDICATION
     Dosage: 250 MG
     Route: 048
  2. FUROSEMIDE. [Suspect]
     Active Substance: FUROSEMIDE
     Indication: PRODUCT USED FOR UNKNOWN INDICATION
     Dosage: 5 DF TOTAL
     Route: 048
     Dates: start: 20141027, end: 20141027
  3. MICARDISPLUS - 80/12.5 [Concomitant]
     Indication: PRODUCT USED FOR UNKNOWN INDICATION
     Dosage: 1 DF
     Route: 048
  4. FELODIPINE. [Concomitant]
     Active Substance: FELODIPINE
     Indication: PRODUCT USED FOR UNKNOWN INDICATION
     Dosage: 5 MG
     Route: 048

REACTIONS (6)
  - Hyponatraemic syndrome [Unknown]
  - Metabolic alkalosis [Unknown]
  - Asthenia [Unknown]
  - Hypokalaemia [Unknown]
  - Abasia [Unknown]
  - Drug abuse [Unknown]

NARRATIVE: CASE EVENT DATE: 20141027
